FAERS Safety Report 22070741 (Version 1)
Quarter: 2023Q1

REPORT INFORMATION
  Report Type: Spontaneous
  Country: US (occurrence: None)
  Receive Date: 20230306
  Receipt Date: 20230306
  Transmission Date: 20230418
  Serious: Yes (Hospitalization)
  Sender: FDA-Public Use
  Company Number: None

PATIENT
  Sex: Female

DRUGS (2)
  1. TADALAFIL [Suspect]
     Active Substance: TADALAFIL
     Dosage: 40MG DAILY ORL
     Dates: start: 202208
  2. DEVICE [Suspect]
     Active Substance: DEVICE

REACTIONS (2)
  - Respiratory failure [None]
  - Device delivery system issue [None]
